FAERS Safety Report 6185569-1 (Version None)
Quarter: 2009Q2

REPORT INFORMATION
  Report Type: 
  Country: None (occurrence: None)
  Receive Date: 20090511
  Receipt Date: 20090507
  Transmission Date: 20091009
  Serious: Yes (Other)
  Sender: FDA-Public Use
  Company Number: DE-PURDUE-DEU_2009_0005235

PATIENT
  Sex: Female

DRUGS (2)
  1. PALLADON RETARD 8 MG [Suspect]
     Indication: PAIN
     Dosage: 8 MG, BID
     Route: 048
     Dates: start: 20080101
  2. CORTISONE [Suspect]

REACTIONS (1)
  - WEIGHT INCREASED [None]
